FAERS Safety Report 7765408-5 (Version None)
Quarter: 2011Q3

REPORT INFORMATION
  Report Type: 
  Country: None (occurrence: None)
  Receive Date: 20110921
  Receipt Date: 20110916
  Transmission Date: 20111222
  Serious: Yes (Life-Threatening, Hospitalization, Other)
  Sender: FDA-Public Use
  Company Number: US-MERCK-1107USA02203

PATIENT
  Age: 64 Year
  Sex: Female
  Weight: 94 kg

DRUGS (19)
  1. ZOCOR [Suspect]
     Indication: BLOOD CHOLESTEROL INCREASED
     Route: 048
     Dates: start: 20070101, end: 20110701
  2. RANEXA [Suspect]
     Route: 048
     Dates: end: 20110706
  3. TOPROL-XL [Concomitant]
     Route: 065
  4. ALDACTONE [Concomitant]
     Dosage: 1/2 TABLET
     Route: 065
  5. DIOVAN [Concomitant]
     Route: 065
  6. GABAPENTIN [Concomitant]
     Route: 065
  7. ADVAIR DISKUS 100/50 [Concomitant]
     Route: 065
  8. HUMULIN R [Concomitant]
     Route: 065
  9. COMBIVENT [Concomitant]
     Route: 065
  10. ALPRAZOLAM [Concomitant]
     Route: 065
  11. ZOCOR [Suspect]
     Indication: HYPERLIPIDAEMIA
     Route: 048
     Dates: start: 20070101, end: 20110701
  12. AMITRIPTYLINE HCL [Concomitant]
     Route: 065
  13. RANEXA [Suspect]
     Indication: ANGINA PECTORIS
     Route: 048
     Dates: start: 20110706
  14. HUMALOG [Concomitant]
     Route: 065
  15. LASIX [Concomitant]
     Route: 065
  16. PLAVIX [Concomitant]
     Route: 065
  17. ASPIRIN [Concomitant]
     Route: 065
  18. LEXAPRO [Concomitant]
     Route: 065
  19. ISOSORBIDE MONONITRATE [Concomitant]
     Route: 065

REACTIONS (4)
  - RENAL FAILURE ACUTE [None]
  - MYOCARDIAL INFARCTION [None]
  - MYALGIA [None]
  - RHABDOMYOLYSIS [None]
